FAERS Safety Report 4980355-X (Version None)
Quarter: 2006Q2

REPORT INFORMATION
  Report Type: 
  Country: None (occurrence: None)
  Receive Date: 20060424
  Receipt Date: 20060413
  Transmission Date: 20061013
  Serious: Yes (Hospitalization)
  Sender: FDA-Public Use
  Company Number: FR-JNJFOC-20060200362

PATIENT
  Sex: Female
  Weight: 57 kg

DRUGS (3)
  1. IMODIUM [Suspect]
     Indication: GASTROENTERITIS
     Dosage: THE PATIENT TOOK 1 TO 2 CAPSULES
     Route: 048
  2. CACIT VITAMIN D3 [Concomitant]
     Route: 065
  3. CACIT VITAMIN D3 [Concomitant]
     Indication: OSTEOPOROSIS
     Dosage: TAKEN TILL 2001 OR 2002
     Route: 065

REACTIONS (4)
  - ALPHA 1 GLOBULIN INCREASED [None]
  - ANGIONEUROTIC OEDEMA [None]
  - BLOOD IMMUNOGLOBULIN E INCREASED [None]
  - HYPERGLYCAEMIA [None]
